FAERS Safety Report 14595433 (Version 1)
Quarter: 2018Q1

REPORT INFORMATION
  Report Type: Report from Study
  Country: None (occurrence: US)
  Receive Date: 20180302
  Receipt Date: 20180302
  Transmission Date: 20180509
  Serious: Yes (Hospitalization)
  Sender: FDA-Public Use
  Company Number: US-ABBVIE-18P-163-2247435-00

PATIENT
  Age: 49 Year
  Sex: Female

DRUGS (39)
  1. DOXORUBICIN [Concomitant]
     Active Substance: DOXORUBICIN
     Dosage: TOTAL OF 6 CYCLES
     Route: 042
     Dates: start: 20180115, end: 20180120
  2. ETOPOSIDE. [Concomitant]
     Active Substance: ETOPOSIDE
     Dosage: TOTAL 6 CYCLES
     Route: 042
     Dates: start: 20180115, end: 20180120
  3. VINCRISTINE [Concomitant]
     Active Substance: VINCRISTINE
     Indication: DIFFUSE LARGE B-CELL LYMPHOMA
     Dosage: TOTAL 6 CYCLES
     Route: 042
     Dates: start: 20171206
  4. VENETOCLAX. [Suspect]
     Active Substance: VENETOCLAX
     Indication: DIFFUSE LARGE B-CELL LYMPHOMA
     Dosage: ON DAYS 3-12 IN CYCLE 1, AND DAYS 1-10 WITH ALL SUBSEQUENT CYCLES
     Route: 048
     Dates: start: 20171206
  5. DOXORUBICIN [Concomitant]
     Active Substance: DOXORUBICIN
     Dosage: TOTAL OF 6 CYCLES
     Route: 042
     Dates: start: 20180115, end: 20180120
  6. ETOPOSIDE. [Concomitant]
     Active Substance: ETOPOSIDE
     Dosage: TOTAL 6 CYCLES
     Route: 042
     Dates: start: 20180207, end: 20180210
  7. SULFAMETHOXAZOLE/TRIMETHOPRIM [Concomitant]
     Active Substance: SULFAMETHOXAZOLE\TRIMETHOPRIM
     Indication: GASTROOESOPHAGEAL REFLUX DISEASE
     Dosage: 800-160 MG ON MONDAY WEDNESDAY AND FRIDAY
     Route: 048
     Dates: start: 20171210
  8. PROCHLORPERAZINE. [Concomitant]
     Active Substance: PROCHLORPERAZINE
     Indication: NAUSEA
  9. VENETOCLAX. [Suspect]
     Active Substance: VENETOCLAX
     Dosage: ON DAYS 3-12 IN CYCLE 1, AND DAYS 1-10 WITH ALL SUBSEQUENT CYCLES
     Route: 048
     Dates: start: 20180115, end: 20180125
  10. RITUXIMAB. [Concomitant]
     Active Substance: RITUXIMAB
     Dosage: INFUSION, SOLUTION
     Route: 042
     Dates: start: 20180207, end: 20180210
  11. VINCRISTINE [Concomitant]
     Active Substance: VINCRISTINE
     Dosage: TOTAL 6 CYCLES
     Route: 042
     Dates: start: 20180207, end: 20180210
  12. PREDNISONE. [Concomitant]
     Active Substance: PREDNISONE
     Dosage: TOTAL 6 CYCLES
     Route: 048
     Dates: start: 20180115, end: 20180120
  13. SULFAMETHOXAZOLE/TRIMETHOPRIM [Concomitant]
     Active Substance: SULFAMETHOXAZOLE\TRIMETHOPRIM
     Indication: PROPHYLAXIS
  14. DOCUSATE SODIUM. [Concomitant]
     Active Substance: DOCUSATE SODIUM
     Indication: CONSTIPATION
     Route: 048
     Dates: start: 20171210
  15. RITUXIMAB. [Concomitant]
     Active Substance: RITUXIMAB
     Indication: DIFFUSE LARGE B-CELL LYMPHOMA
     Dosage: INFUSION, SOLUTION
     Route: 042
     Dates: start: 20171206
  16. DOXORUBICIN [Concomitant]
     Active Substance: DOXORUBICIN
     Indication: DIFFUSE LARGE B-CELL LYMPHOMA
     Dosage: TOTAL OF 6 CYCLES
     Route: 042
     Dates: start: 20171206
  17. ETOPOSIDE. [Concomitant]
     Active Substance: ETOPOSIDE
     Indication: DIFFUSE LARGE B-CELL LYMPHOMA
     Dosage: TOTAL 6 CYCLES
     Route: 042
     Dates: start: 20171206
  18. ZOLPIDEM [Concomitant]
     Active Substance: ZOLPIDEM\ZOLPIDEM TARTRATE
     Indication: INSOMNIA
     Route: 048
     Dates: start: 20171210
  19. PAROXETINE. [Concomitant]
     Active Substance: PAROXETINE
     Indication: ANXIETY
     Route: 048
  20. PAROXETINE. [Concomitant]
     Active Substance: PAROXETINE
     Indication: DEPRESSION
  21. MAGIC MOUTHWASH [Concomitant]
     Active Substance: DIPHENHYDRAMINE HYDROCHLORIDE\LIDOCAINE HYDROCHLORIDE\NYSTATIN
     Indication: PRODUCT USED FOR UNKNOWN INDICATION
  22. CYCLOPHOSPHAMIDE. [Concomitant]
     Active Substance: CYCLOPHOSPHAMIDE
     Indication: DIFFUSE LARGE B-CELL LYMPHOMA
     Dosage: TOTAL 6 CYCLES
     Route: 042
     Dates: start: 20171206
  23. CYCLOPHOSPHAMIDE. [Concomitant]
     Active Substance: CYCLOPHOSPHAMIDE
     Dosage: TOTAL 6 CYCLES
     Route: 042
     Dates: start: 20180207, end: 20180210
  24. PREDNISONE. [Concomitant]
     Active Substance: PREDNISONE
     Indication: DIFFUSE LARGE B-CELL LYMPHOMA
     Dosage: TOTAL 6 CYCLES
     Route: 048
     Dates: start: 20171206
  25. PREDNISONE. [Concomitant]
     Active Substance: PREDNISONE
     Dosage: TOTAL 6 CYCLES
     Route: 048
     Dates: start: 20180207, end: 20180210
  26. BIOTENE MOUTHWASH [Concomitant]
     Active Substance: CETYLPYRIDINIUM CHLORIDE
     Indication: DRY MOUTH
     Route: 048
     Dates: start: 20171229
  27. LORAZEPAM. [Concomitant]
     Active Substance: LORAZEPAM
     Indication: ANXIETY
     Route: 048
     Dates: start: 20171211
  28. CLOTRIMAZOLE. [Concomitant]
     Active Substance: CLOTRIMAZOLE
     Indication: MUCOSAL INFLAMMATION
     Dosage: LOZENGE
     Route: 048
     Dates: start: 20180119, end: 20180129
  29. SENNA [Concomitant]
     Active Substance: SENNA LEAF\SENNOSIDES\SENNOSIDES A AND B
     Indication: CONSTIPATION
     Route: 048
     Dates: start: 20180118
  30. VALTREX [Concomitant]
     Active Substance: VALACYCLOVIR HYDROCHLORIDE
     Indication: TONGUE ULCERATION
     Route: 048
     Dates: start: 20180118, end: 20180126
  31. PANTOPRAZOLE [Concomitant]
     Active Substance: PANTOPRAZOLE
     Indication: PRODUCT USED FOR UNKNOWN INDICATION
     Dosage: DELAYED RELEASE
     Route: 048
     Dates: start: 20171219
  32. PROCHLORPERAZINE. [Concomitant]
     Active Substance: PROCHLORPERAZINE
     Indication: VOMITING
     Route: 048
     Dates: start: 20180109
  33. RITUXIMAB. [Concomitant]
     Active Substance: RITUXIMAB
     Dosage: INFUSION, SOLUTION
     Route: 042
     Dates: start: 20180115, end: 20180120
  34. LIDOCAINE. [Concomitant]
     Active Substance: LIDOCAINE
     Indication: MUCOSAL INFLAMMATION
     Dosage: MUCOUS MEMBRANE SOLUTION
     Dates: start: 20180119, end: 20180126
  35. TYLENOL [Concomitant]
     Active Substance: ACETAMINOPHEN
     Indication: PRODUCT USED FOR UNKNOWN INDICATION
  36. VENETOCLAX. [Suspect]
     Active Substance: VENETOCLAX
     Dosage: ON DAYS 3-12 IN CYCLE 1, AND DAYS 1-10 WITH ALL SUBSEQUENT CYCLES
     Route: 048
     Dates: start: 20180207, end: 20180216
  37. CYCLOPHOSPHAMIDE. [Concomitant]
     Active Substance: CYCLOPHOSPHAMIDE
     Dosage: TOTAL 6 CYCLES
     Route: 042
     Dates: start: 20180115, end: 20180120
  38. VINCRISTINE [Concomitant]
     Active Substance: VINCRISTINE
     Dosage: TOTAL 6 CYCLES
     Route: 042
     Dates: start: 20180115, end: 20180120
  39. VALACICLOVIR [Concomitant]
     Active Substance: VALACYCLOVIR HYDROCHLORIDE
     Indication: PROPHYLAXIS
     Route: 048
     Dates: start: 20180118

REACTIONS (2)
  - Mucosal inflammation [Not Recovered/Not Resolved]
  - Febrile neutropenia [Unknown]

NARRATIVE: CASE EVENT DATE: 20180126
